FAERS Safety Report 7073563-8 (Version None)
Quarter: 2010Q4

REPORT INFORMATION
  Report Type: 
  Country: None (occurrence: None)
  Receive Date: 20101029
  Receipt Date: 20100709
  Transmission Date: 20110411
  Serious: No
  Sender: FDA-Public Use
  Company Number: A0869503A

PATIENT
  Sex: Female

DRUGS (4)
  1. ADVAIR DISKUS 100/50 [Suspect]
     Indication: ASTHMA
     Dosage: 2PUFF PER DAY
     Route: 055
  2. ACETAMINOPHEN [Concomitant]
  3. HERBAL SUPPLEMENTS [Concomitant]
  4. DIURETIC [Concomitant]

REACTIONS (3)
  - CHOKING SENSATION [None]
  - INFLAMMATION [None]
  - SWELLING [None]
